FAERS Safety Report 10751959 (Version 1)
Quarter: 2015Q1

REPORT INFORMATION
  Report Type: Spontaneous
  Country: FR (occurrence: FR)
  Receive Date: 20150130
  Receipt Date: 20150130
  Transmission Date: 20150721
  Serious: Yes (Hospitalization)
  Sender: FDA-Public Use
  Company Number: FR-ABBVIE-15P-056-1339280-00

PATIENT
  Age: 12 Year
  Sex: Female

DRUGS (9)
  1. BIPROFENID [Suspect]
     Active Substance: KETOPROFEN
     Indication: SUICIDE ATTEMPT
     Dosage: MODIFIED-RELEASE TABLET
     Route: 048
     Dates: start: 20140126, end: 20140126
  2. DICLOFENAC [Suspect]
     Active Substance: DICLOFENAC
     Indication: SUICIDE ATTEMPT
     Route: 048
     Dates: start: 20140126, end: 20140126
  3. DEPAKOTE [Suspect]
     Active Substance: DIVALPROEX SODIUM
     Indication: SUICIDE ATTEMPT
     Dosage: GASTRO-RESISTANT
     Route: 048
     Dates: start: 20140126, end: 20140126
  4. ALPRAZOLAM. [Suspect]
     Active Substance: ALPRAZOLAM
     Indication: SUICIDE ATTEMPT
     Route: 048
     Dates: start: 20140126, end: 20140126
  5. SURGAM [Suspect]
     Active Substance: TIAPROFENIC ACID
     Indication: SUICIDE ATTEMPT
     Route: 048
     Dates: start: 20140126, end: 20140126
  6. SEROPLEX [Suspect]
     Active Substance: ESCITALOPRAM OXALATE
     Indication: SUICIDE ATTEMPT
     Dosage: FILM COATED
     Route: 048
     Dates: start: 20140126, end: 20140126
  7. TETRAZEPAM [Suspect]
     Active Substance: TETRAZEPAM
     Indication: SUICIDE ATTEMPT
     Route: 048
     Dates: start: 20140126, end: 20140126
  8. VENLAFAXINE [Suspect]
     Active Substance: VENLAFAXINE HYDROCHLORIDE
     Indication: SUICIDE ATTEMPT
     Route: 048
     Dates: start: 20140126, end: 20140126
  9. TRAZEPAM [Concomitant]
     Indication: PRODUCT USED FOR UNKNOWN INDICATION
     Dates: start: 20140126, end: 20140126

REACTIONS (3)
  - Somnolence [Recovered/Resolved]
  - Toxicity to various agents [Recovered/Resolved]
  - Vomiting [Recovered/Resolved]

NARRATIVE: CASE EVENT DATE: 20140126
